FAERS Safety Report 7940537-1 (Version None)
Quarter: 2011Q4

REPORT INFORMATION
  Report Type: 
  Country: None (occurrence: None)
  Receive Date: 20111128
  Receipt Date: 20111115
  Transmission Date: 20120403
  Serious: Yes (Life-Threatening)
  Sender: FDA-Public Use
  Company Number: GB-RANBAXY-2011R1-50501

PATIENT

DRUGS (1)
  1. NAPROXEN [Suspect]
     Indication: HEADACHE
     Dosage: UNK
     Route: 048
     Dates: start: 20110608, end: 20110612

REACTIONS (5)
  - BRAIN OEDEMA [None]
  - HYPONATRAEMIA [None]
  - AGITATION [None]
  - SYNCOPE [None]
  - ABNORMAL BEHAVIOUR [None]
